FAERS Safety Report 17694745 (Version 1)
Quarter: 2020Q2

REPORT INFORMATION
  Report Type: Spontaneous
  Country: US (occurrence: US)
  Receive Date: 20200422
  Receipt Date: 20200422
  Transmission Date: 20200714
  Serious: No
  Sender: FDA-Public Use
  Company Number: US-ELI_LILLY_AND_COMPANY-US202004005977

PATIENT
  Age: 32 Year
  Sex: Female

DRUGS (5)
  1. EMGALITY [Suspect]
     Active Substance: GALCANEZUMAB-GNLM
     Indication: MIGRAINE
     Dosage: 120 MG, UNKNOWN
     Route: 058
     Dates: start: 202002
  2. EMGALITY [Suspect]
     Active Substance: GALCANEZUMAB-GNLM
     Indication: MIGRAINE
     Dosage: 120 MG, UNKNOWN
     Route: 058
     Dates: start: 202002
  3. MAGNESIUM [Concomitant]
     Active Substance: MAGNESIUM
     Indication: MIGRAINE
     Dosage: UNK, UNKNOWN
     Route: 065
  4. EMGALITY [Suspect]
     Active Substance: GALCANEZUMAB-GNLM
     Dosage: 120 UNK
     Route: 058
  5. EMGALITY [Suspect]
     Active Substance: GALCANEZUMAB-GNLM
     Dosage: 120 UNK
     Route: 058

REACTIONS (6)
  - Injection site haemorrhage [Unknown]
  - Injection site urticaria [Unknown]
  - Injection site pain [Unknown]
  - Injection site bruising [Unknown]
  - Underdose [Unknown]
  - Injection site erythema [Unknown]

NARRATIVE: CASE EVENT DATE: 20200412
